FAERS Safety Report 15289566 (Version 2)
Quarter: 2018Q3

REPORT INFORMATION
  Report Type: Spontaneous
  Country: US (occurrence: US)
  Receive Date: 20180817
  Receipt Date: 20180821
  Transmission Date: 20181010
  Serious: Yes (Other)
  Sender: FDA-Public Use
  Company Number: US-PFIZER INC-2018327430

PATIENT
  Age: 14 Year
  Sex: Female

DRUGS (2)
  1. EFFEXOR XR [Suspect]
     Active Substance: VENLAFAXINE HYDROCHLORIDE
     Dosage: UNK
  2. LATUDA [Suspect]
     Active Substance: LURASIDONE HYDROCHLORIDE
     Dosage: UNK

REACTIONS (6)
  - Post-traumatic stress disorder [Unknown]
  - Insomnia [Unknown]
  - Drug administered to patient of inappropriate age [Unknown]
  - Intentional self-injury [Unknown]
  - Bipolar disorder [Unknown]
  - Migraine [Unknown]
